FAERS Safety Report 4520213-8 (Version None)
Quarter: 2004Q4

REPORT INFORMATION
  Report Type: 
  Country: None (occurrence: None)
  Receive Date: 20041207
  Receipt Date: 20041129
  Transmission Date: 20050328
  Serious: Yes (Hospitalization)
  Sender: FDA-Public Use
  Company Number: IR-BRISTOL-MYERS SQUIBB COMPANY-12776365

PATIENT
  Age: 15 Year
  Sex: Female

DRUGS (3)
  1. CISPLATIN [Suspect]
     Indication: OVARIAN DYSGERMINOMA STAGE II
  2. BLEOMYCIN [Suspect]
     Indication: OVARIAN DYSGERMINOMA STAGE II
  3. VINBLASTINE SULFATE [Suspect]
     Indication: OVARIAN DYSGERMINOMA STAGE II

REACTIONS (2)
  - HYPOKALAEMIA [None]
  - PARALYSIS [None]
